FAERS Safety Report 7767244-2 (Version None)
Quarter: 2011Q3

REPORT INFORMATION
  Report Type: 
  Country: None (occurrence: None)
  Receive Date: 20110922
  Receipt Date: 20100301
  Transmission Date: 20111222
  Serious: No
  Sender: FDA-Public Use
  Company Number: US-ASTRAZENECA-2009UW11029

PATIENT
  Age: 18495 Day
  Sex: Male

DRUGS (7)
  1. TRIAMTERENE AND HYDROCHLOROTHIAZIDE [Concomitant]
     Dates: start: 20030107
  2. DEPAKOTE ER [Concomitant]
     Dates: start: 20030205
  3. SEROQUEL [Suspect]
     Dosage: 25 MG-100 MG
     Route: 048
     Dates: start: 20021218
  4. PAXIL CR [Concomitant]
     Dates: start: 20021122
  5. NAPROXEN [Concomitant]
     Dates: start: 20021122
  6. AMBIEN [Concomitant]
     Dates: start: 20021122
  7. ATENOLOL [Concomitant]
     Dates: start: 20030107

REACTIONS (4)
  - DIABETES MELLITUS [None]
  - TYPE 2 DIABETES MELLITUS [None]
  - TYPE 1 DIABETES MELLITUS [None]
  - PROTEINURIA [None]
